FAERS Safety Report 20947094 (Version 3)
Quarter: 2025Q3

REPORT INFORMATION
  Report Type: Report from Study
  Country: US (occurrence: US)
  Receive Date: 20220610
  Receipt Date: 20250903
  Transmission Date: 20251021
  Serious: Yes (Other)
  Sender: UCB
  Company Number: US-UCBSA-2022031235

PATIENT
  Sex: Female

DRUGS (5)
  1. BRIVARACETAM [Suspect]
     Active Substance: BRIVARACETAM
     Indication: Seizure
     Dosage: 50 MILLIGRAM, 2X/DAY (BID)
  2. BRIVARACETAM [Suspect]
     Active Substance: BRIVARACETAM
     Route: 048
  3. OXCARBAZEPINE [Concomitant]
     Active Substance: OXCARBAZEPINE
     Indication: Product used for unknown indication
  4. VITAMINS [Concomitant]
     Active Substance: VITAMINS
     Indication: Product used for unknown indication
  5. OMEGA-6 FATTY ACIDS [Concomitant]
     Active Substance: OMEGA-6 FATTY ACIDS
     Indication: Product used for unknown indication

REACTIONS (3)
  - Seizure [Not Recovered/Not Resolved]
  - Inability to afford medication [Unknown]
  - Off label use [Unknown]
